FAERS Safety Report 7322298-2 (Version None)
Quarter: 2011Q1

REPORT INFORMATION
  Report Type: 
  Country: None (occurrence: None)
  Receive Date: 20110301
  Receipt Date: 20110217
  Transmission Date: 20110831
  Serious: No
  Sender: FDA-Public Use
  Company Number: US-BIOGENIDEC-2011BI006390

PATIENT
  Age: 39 Year
  Sex: Female

DRUGS (5)
  1. TOPAMAX [Concomitant]
     Indication: PARAESTHESIA
  2. TOPAMAX [Concomitant]
     Indication: BURNING SENSATION
  3. TYSABRI [Suspect]
     Indication: MULTIPLE SCLEROSIS
     Route: 042
     Dates: start: 20110210
  4. AVONEX [Concomitant]
     Indication: MULTIPLE SCLEROSIS
     Route: 030
     Dates: start: 19980101
  5. TOPAMAX [Concomitant]
     Indication: CHILLS

REACTIONS (4)
  - CHILLS [None]
  - PARAESTHESIA [None]
  - INFUSION SITE HAEMATOMA [None]
  - BURNING SENSATION [None]
